FAERS Safety Report 10284882 (Version 2)
Quarter: 2014Q3

REPORT INFORMATION
  Report Type: Report from Study
  Country: FR (occurrence: FR)
  Receive Date: 20140708
  Receipt Date: 20140708
  Transmission Date: 20150326
  Serious: Yes (Hospitalization)
  Sender: FDA-Public Use
  Company Number: PHHO2014FR007515

PATIENT

DRUGS (6)
  1. AMN107 [Suspect]
     Active Substance: NILOTINIB
     Indication: ACUTE LYMPHOCYTIC LEUKAEMIA
     Dosage: 400 MG, BID
     Route: 048
     Dates: start: 20130920, end: 20131018
  2. AMN107 [Suspect]
     Active Substance: NILOTINIB
     Dosage: 400 MG, BID
     Route: 048
     Dates: start: 20131106, end: 20140429
  3. AMN107 [Suspect]
     Active Substance: NILOTINIB
     Dosage: 400 MG, BID
     Route: 048
     Dates: start: 20140505
  4. DEXAMETHASONE. [Concomitant]
     Active Substance: DEXAMETHASONE
     Indication: IMMUNOSUPPRESSION
     Dosage: 10 MG/M2, QD
  5. ARACYTINE [Suspect]
     Active Substance: CYTARABINE
     Indication: ACUTE LYMPHOCYTIC LEUKAEMIA
     Dosage: 1.65 G, BID
     Route: 042
     Dates: start: 20140429, end: 20140504
  6. VINCRISTINE [Concomitant]
     Active Substance: VINCRISTINE
     Indication: IMMUNOSUPPRESSION
     Dosage: 2 MG, QD

REACTIONS (1)
  - Febrile bone marrow aplasia [Recovered/Resolved]

NARRATIVE: CASE EVENT DATE: 20140513
